FAERS Safety Report 16880237 (Version 1)
Quarter: 2019Q4

REPORT INFORMATION
  Report Type: Spontaneous
  Country: JP (occurrence: JP)
  Receive Date: 20191003
  Receipt Date: 20191003
  Transmission Date: 20200122
  Serious: Yes (Other)
  Sender: FDA-Public Use
  Company Number: JP-ROCHE-2426660

PATIENT
  Age: 72 Year
  Sex: Male

DRUGS (4)
  1. LUCENTIS [Suspect]
     Active Substance: RANIBIZUMAB
     Indication: NEOVASCULAR AGE-RELATED MACULAR DEGENERATION
     Dosage: 1 UNK, PRN
     Route: 050
  2. AFLIBERCEPT [Concomitant]
     Active Substance: AFLIBERCEPT
     Indication: NEOVASCULAR AGE-RELATED MACULAR DEGENERATION
     Dosage: 10 OCCASIONS
     Route: 047
  3. AFLIBERCEPT [Concomitant]
     Active Substance: AFLIBERCEPT
     Dosage: TOTAL OF 7 TIMES
     Route: 047
     Dates: start: 201708, end: 201808
  4. AFLIBERCEPT [Concomitant]
     Active Substance: AFLIBERCEPT
     Dosage: TOTAL OF 10 TIMES
     Route: 047
     Dates: start: 20170628

REACTIONS (9)
  - Disease progression [Unknown]
  - Eye disorder [Unknown]
  - Retinal drusen [Unknown]
  - Macular oedema [Unknown]
  - Visual acuity reduced [Unknown]
  - Detachment of retinal pigment epithelium [Unknown]
  - Macular hole [Unknown]
  - Retinal pigment epitheliopathy [Unknown]
  - Leukoderma [Unknown]

NARRATIVE: CASE EVENT DATE: 20170530
